FAERS Safety Report 7800425-8 (Version None)
Quarter: 2011Q4

REPORT INFORMATION
  Report Type: 
  Country: None (occurrence: None)
  Receive Date: 20111004
  Receipt Date: 20110922
  Transmission Date: 20120403
  Serious: Yes (Disabling)
  Sender: FDA-Public Use
  Company Number: AUR-APL-2011-04560

PATIENT
  Age: 54 Year
  Sex: Male

DRUGS (9)
  1. POTASSIUM CHLORIDE [Concomitant]
  2. CRESTOR [Suspect]
     Indication: PRODUCT USED FOR UNKNOWN INDICATION
  3. ISOPHANE INSULIN [Concomitant]
  4. DIGOXIN [Concomitant]
  5. MAGNYL ^DAK^ (AETYLSALICYLIC ACID) [Concomitant]
  6. FUROSEMIDE [Concomitant]
  7. METFORMIN HCL [Suspect]
     Indication: PRODUCT USED FOR UNKNOWN INDICATION
     Route: 048
  8. ONGLYZA [Suspect]
     Indication: TYPE 2 DIABETES MELLITUS
     Dosage: 5 MG (5 MG,1 IN 1 D),ORAL
     Route: 048
     Dates: start: 20101110, end: 20101204
  9. DIPYRIDAMOLE [Concomitant]

REACTIONS (4)
  - HEADACHE [None]
  - FLUID RETENTION [None]
  - WEIGHT INCREASED [None]
  - DISCOMFORT [None]
